FAERS Safety Report 7242823-X (Version None)
Quarter: 2011Q1

REPORT INFORMATION
  Report Type: 
  Country: None (occurrence: None)
  Receive Date: 20110125
  Receipt Date: 20110113
  Transmission Date: 20110831
  Serious: Yes (Life-Threatening, Hospitalization, Other)
  Sender: FDA-Public Use
  Company Number: PHFR2010GB06098

PATIENT
  Sex: Female

DRUGS (4)
  1. CLOZARIL [Suspect]
     Indication: SCHIZOPHRENIA
     Dosage: 75 MG MANE, 250 MG NOCTE
     Route: 048
     Dates: start: 20081103
  2. CLOZARIL [Suspect]
     Dosage: UNK
     Route: 048
     Dates: start: 20110107
  3. CLOZARIL [Suspect]
     Dosage: 17.5 MG MANE, 250 MG NOCTE
     Route: 048
     Dates: end: 20101231
  4. GLICLAZIDE [Concomitant]
     Indication: DIABETES MELLITUS

REACTIONS (7)
  - BLOOD GLUCOSE INCREASED [None]
  - RENAL IMPAIRMENT [None]
  - CARDIAC ARREST [None]
  - WHITE BLOOD CELL COUNT INCREASED [None]
  - DIABETES MELLITUS [None]
  - NEUTROPHIL COUNT INCREASED [None]
  - RESPIRATORY FAILURE [None]
